FAERS Safety Report 17373225 (Version 4)
Quarter: 2024Q1

REPORT INFORMATION
  Report Type: Spontaneous
  Country: IT (occurrence: IT)
  Receive Date: 20200205
  Receipt Date: 20240301
  Transmission Date: 20240410
  Serious: Yes (Death, Other)
  Sender: FDA-Public Use
  Company Number: IT-009507513-2002ITA001239

PATIENT
  Age: 60 Year
  Sex: Female
  Weight: 90 kg

DRUGS (3)
  1. KEYTRUDA [Suspect]
     Active Substance: PEMBROLIZUMAB
     Indication: Non-small cell lung cancer metastatic
     Dosage: 200 MILLIGRAM, CYCLICAL, FORMULATION: CONCENTRATE FOR SOLUTION FOR INFUSION
     Route: 040
     Dates: start: 20191014, end: 20200131
  2. LEVOTHYROXINE SODIUM [Concomitant]
     Active Substance: LEVOTHYROXINE SODIUM
     Dosage: UNK
  3. RAMIPRIL [Concomitant]
     Active Substance: RAMIPRIL
     Dosage: UNK

REACTIONS (5)
  - Thrombocytopenia [Fatal]
  - Hepatitis acute [Fatal]
  - Orthostatic hypotension [Fatal]
  - Acute kidney injury [Fatal]
  - Leukocytosis [Fatal]

NARRATIVE: CASE EVENT DATE: 20200202
